FAERS Safety Report 8787335 (Version 1)
Quarter: 2012Q4

REPORT INFORMATION
  Report Type: 
  Country: CA (occurrence: CA)
  Receive Date: 20120914
  Receipt Date: 20120914
  Transmission Date: 20130627
  Serious: Yes (Other)
  Sender: FDA-Public Use
  Company Number: CHPA2012CA019228

PATIENT
  Age: 81 Year
  Sex: Male

DRUGS (1)
  1. MAALOX [Suspect]
     Indication: GASTRITIS
     Dosage: 3 TSP, QID PRN
     Route: 048
     Dates: end: 2012

REACTIONS (3)
  - Neoplasm malignant [Not Recovered/Not Resolved]
  - Therapeutic response unexpected [Unknown]
  - Off label use [Unknown]
